FAERS Safety Report 24288299 (Version 1)
Quarter: 2024Q3

REPORT INFORMATION
  Report Type: Spontaneous
  Country: US (occurrence: CN)
  Receive Date: 20240905
  Receipt Date: 20240905
  Transmission Date: 20241016
  Serious: Yes (Death, Other)
  Sender: JIANGSU HENGRUI MEDICINE
  Company Number: CN-Jiangsu Hengrui Medicine Co., Ltd.-2161288

PATIENT
  Age: 69 Year
  Sex: Female

DRUGS (6)
  1. CYCLOPHOSPHAMIDE [Suspect]
     Active Substance: CYCLOPHOSPHAMIDE
     Indication: Immunosuppression
  2. UNSPECIFIED INGREDIENT [Suspect]
     Active Substance: UNSPECIFIED INGREDIENT
  3. NIVOLUMAB [Concomitant]
     Active Substance: NIVOLUMAB
  4. IPILIMUMAB [Concomitant]
     Active Substance: IPILIMUMAB
  5. TACROLIMUS [Suspect]
     Active Substance: TACROLIMUS
  6. MYCOPHENOLATE MOFETIL [Suspect]
     Active Substance: MYCOPHENOLATE MOFETIL

REACTIONS (6)
  - Immunosuppression [Fatal]
  - Product use in unapproved indication [Unknown]
  - Septic shock [Unknown]
  - Bacteraemia [Unknown]
  - Respiratory failure [Unknown]
  - Neutropenia [Unknown]
